FAERS Safety Report 7562985-4 (Version None)
Quarter: 2011Q2

REPORT INFORMATION
  Report Type: 
  Country: None (occurrence: None)
  Receive Date: 20110525
  Receipt Date: 20110411
  Transmission Date: 20111010
  Serious: No
  Sender: FDA-Public Use
  Company Number: 326485

PATIENT
  Age: 58 Year
  Sex: Female
  Weight: 131.5 kg

DRUGS (5)
  1. GLYBURIDE [Concomitant]
  2. LEVEMIR [Concomitant]
  3. BD NEEDLE [Suspect]
     Indication: TYPE 2 DIABETES MELLITUS
  4. VICTOZA [Suspect]
     Indication: TYPE 2 DIABETES MELLITUS
     Dosage: 1.8 MG, QD, SUBCUTANEOUS
     Route: 058
     Dates: start: 20110301, end: 20110404
  5. GLUCOPHAGE [Concomitant]

REACTIONS (3)
  - LOSS OF CONSCIOUSNESS [None]
  - INJECTION SITE HAEMORRHAGE [None]
  - HYPERHIDROSIS [None]
